FAERS Safety Report 12634101 (Version 1)
Quarter: 2016Q3

REPORT INFORMATION
  Report Type: Spontaneous
  Country: US (occurrence: None)
  Receive Date: 20160808
  Receipt Date: 20160808
  Transmission Date: 20161109
  Serious: Yes (Death)
  Sender: FDA-Public Use
  Company Number: None

PATIENT
  Age: 20 Year
  Sex: Female

DRUGS (2)
  1. AQUADEKS SOFTGEL YASOO HEALTH [Suspect]
     Active Substance: MINERALS\VITAMINS
     Dosage: MVI BID ORAL
     Route: 048
     Dates: start: 20160715, end: 20160729
  2. SODIUM CHLORIDE 3% NEPHRON [Suspect]
     Active Substance: SODIUM CHLORIDE
     Indication: CYSTIC FIBROSIS
     Dosage: 3% BID INHALED
     Route: 055
     Dates: start: 20160613, end: 20160729

REACTIONS (1)
  - Death [None]

NARRATIVE: CASE EVENT DATE: 20160729
